FAERS Safety Report 4404992-6 (Version None)
Quarter: 2004Q3

REPORT INFORMATION
  Report Type: 
  Country: None (occurrence: None)
  Receive Date: 20040716
  Receipt Date: 20040714
  Transmission Date: 20050211
  Serious: Yes (Other)
  Sender: FDA-Public Use
  Company Number: HQWYE082014JUL04

PATIENT
  Age: 72 Year
  Sex: Male
  Weight: 82.3 kg

DRUGS (4)
  1. MYLOTARG [Suspect]
     Indication: ACUTE MYELOID LEUKAEMIA
     Dosage: 18 MG 1X PER 1 DAY, INTRAVENOUS
     Route: 042
     Dates: start: 20030925, end: 20030925
  2. RAPAMUNE [Suspect]
     Dates: end: 20031010
  3. RAPAMUNE [Suspect]
     Dates: start: 20031011, end: 20031126
  4. TACROLIMUS (TACROLIMUS, ) [Suspect]
     Dates: end: 20031010

REACTIONS (4)
  - ALANINE AMINOTRANSFERASE INCREASED [None]
  - ASPARTATE AMINOTRANSFERASE INCREASED [None]
  - RENAL FAILURE [None]
  - WEIGHT INCREASED [None]
